FAERS Safety Report 5410880-9 (Version None)
Quarter: 2007Q3

REPORT INFORMATION
  Report Type: 
  Country: None (occurrence: None)
  Receive Date: 20070810
  Receipt Date: 20070803
  Transmission Date: 20080115
  Serious: Yes (Other)
  Sender: FDA-Public Use
  Company Number: PHNR2007AU01461

PATIENT
  Sex: Male

DRUGS (3)
  1. TEGRETOL [Suspect]
     Dosage: 200 MG, BID
  2. HALOPERIDOL [Concomitant]
  3. VALPROATE BISMUTH [Concomitant]

REACTIONS (2)
  - CONVULSION [None]
  - WEIGHT INCREASED [None]
